FAERS Safety Report 4681816-3 (Version None)
Quarter: 2005Q2

REPORT INFORMATION
  Report Type: 
  Country: None (occurrence: None)
  Receive Date: 20050602
  Receipt Date: 20050525
  Transmission Date: 20051028
  Serious: Yes (Other)
  Sender: FDA-Public Use
  Company Number: 2005-05-1129

PATIENT
  Age: 53 Year
  Sex: Male

DRUGS (3)
  1. GENTAMICIN [Suspect]
     Dosage: 80 MG INTRAVENOUS
     Route: 042
     Dates: start: 20050428
  2. PIPERACILLIN INJECTABLE [Concomitant]
  3. MEROPENAM  INJECTABLE [Concomitant]

REACTIONS (3)
  - DIALYSIS [None]
  - HYPERKALAEMIA [None]
  - RENAL IMPAIRMENT [None]
